FAERS Safety Report 13927096 (Version 1)
Quarter: 2017Q3

REPORT INFORMATION
  Report Type: Spontaneous
  Country: US (occurrence: US)
  Receive Date: 20170831
  Receipt Date: 20170831
  Transmission Date: 20171127
  Serious: No
  Sender: FDA-Public Use
  Company Number: US-TOLMAR, INC.-2016US008430

PATIENT
  Age: 63 Year
  Sex: Male
  Weight: 116.5 kg

DRUGS (4)
  1. ELIGARD [Suspect]
     Active Substance: LEUPROLIDE ACETATE
     Indication: PROSTATE CANCER
     Dosage: UNK UNK, Q3MONTHS
     Route: 058
     Dates: start: 20160324
  2. AVAPRO [Concomitant]
     Active Substance: IRBESARTAN
  3. ELIGARD [Suspect]
     Active Substance: LEUPROLIDE ACETATE
     Indication: PROSTATE CANCER
     Dosage: UNK, EVERY 6 MONTHS
     Route: 058
     Dates: start: 20160627
  4. MEGESTROL [Concomitant]
     Active Substance: MEGESTROL

REACTIONS (1)
  - Asthenia [Not Recovered/Not Resolved]

NARRATIVE: CASE EVENT DATE: 20160627
